FAERS Safety Report 14836954 (Version 1)
Quarter: 2018Q2

REPORT INFORMATION
  Report Type: Spontaneous
  Country: FR (occurrence: FR)
  Receive Date: 20180502
  Receipt Date: 20180502
  Transmission Date: 20180711
  Serious: Yes (Other)
  Sender: FDA-Public Use
  Company Number: FR-MERCK KGAA-2046987

PATIENT
  Age: 42 Year
  Sex: Female

DRUGS (1)
  1. NOVOTHYROX [Suspect]
     Active Substance: LEVOTHYROXINE SODIUM
     Indication: PRODUCT USED FOR UNKNOWN INDICATION

REACTIONS (29)
  - Abdominal pain [None]
  - Amnesia [None]
  - Disturbance in attention [None]
  - Eosinophil count increased [None]
  - Blood cholesterol increased [None]
  - Decreased activity [None]
  - Hypothyroidism [None]
  - Alopecia [None]
  - Vomiting [None]
  - Nausea [None]
  - Abdominal pain upper [None]
  - Eating disorder [None]
  - Social avoidant behaviour [None]
  - Emotional distress [None]
  - Weight increased [None]
  - Hyperthyroidism [None]
  - Constipation [None]
  - Irritability [None]
  - Loss of personal independence in daily activities [None]
  - Asthenia [None]
  - Gastrointestinal disorder [None]
  - Myalgia [None]
  - Impatience [None]
  - Depression [None]
  - Feeling abnormal [None]
  - Muscle fatigue [None]
  - Fatigue [None]
  - Red blood cell sedimentation rate increased [None]
  - White blood cell count increased [None]

NARRATIVE: CASE EVENT DATE: 20170217
